FAERS Safety Report 5017236-1 (Version None)
Quarter: 2006Q2

REPORT INFORMATION
  Report Type: 
  Country: None (occurrence: None)
  Receive Date: 20060414
  Receipt Date: 20060303
  Transmission Date: 20061013
  Serious: No
  Sender: FDA-Public Use
  Company Number: 2006SP001062

PATIENT
  Age: 69 Year
  Sex: Female
  Weight: 79.3795 kg

DRUGS (5)
  1. LUNESTA [Suspect]
     Indication: INSOMNIA
     Dosage: 2 MG;ORAL
     Route: 048
     Dates: end: 20060101
  2. HYZAAR [Concomitant]
  3. GLUCOTROL XL [Concomitant]
  4. INSULIN [Concomitant]
  5. AMBIEN [Concomitant]

REACTIONS (2)
  - ABNORMAL DREAMS [None]
  - MIGRAINE [None]
